FAERS Safety Report 6010016-X (Version None)
Quarter: 2008Q4

REPORT INFORMATION
  Report Type: 
  Country: None (occurrence: None)
  Receive Date: 20081218
  Receipt Date: 20081205
  Transmission Date: 20090506
  Serious: Yes (Other)
  Sender: FDA-Public Use
  Company Number: FR-PFIZER INC-2008093621

PATIENT

DRUGS (2)
  1. DOSTINEX [Suspect]
     Indication: PITUITARY TUMOUR BENIGN
     Dosage: *3 DOSAGE FORM DAILY EVERY WEEK TDD:3 DO
     Dates: start: 20080501, end: 20080101
  2. HYDROCORTISONE [Concomitant]

REACTIONS (1)
  - COLITIS ISCHAEMIC [None]
